FAERS Safety Report 9846615 (Version 1)
Quarter: 2014Q1

REPORT INFORMATION
  Report Type: Report from Study
  Country: US (occurrence: US)
  Receive Date: 20140127
  Receipt Date: 20140127
  Transmission Date: 20141002
  Serious: Yes (Other)
  Sender: FDA-Public Use
  Company Number: US-VIIV HEALTHCARE LIMITED-B0900976A

PATIENT
  Age: 47 Year
  Sex: Male
  Weight: 88.6 kg

DRUGS (8)
  1. MARAVIROC [Suspect]
     Indication: HIV INFECTION
     Route: 048
     Dates: start: 20120725
  2. DARUNAVIR [Suspect]
     Indication: HIV INFECTION
     Route: 048
     Dates: start: 20120725
  3. RITONAVIR [Suspect]
     Indication: HIV INFECTION
     Route: 048
     Dates: start: 20120725
  4. WELLBUTRIN SR [Concomitant]
     Indication: DEPRESSION
     Dosage: 100MG IN THE MORNING
     Route: 048
     Dates: start: 20130523
  5. LORAZEPAM [Concomitant]
     Indication: ANXIETY
     Dosage: .5MG AS REQUIRED
     Route: 048
     Dates: start: 20120409
  6. LOMOTIL [Concomitant]
     Indication: DIARRHOEA
     Dosage: 2.5MG PER DAY
     Route: 048
     Dates: start: 20130320
  7. BENTYL [Concomitant]
     Indication: DIARRHOEA
     Dosage: 10MG PER DAY
     Route: 048
     Dates: start: 20130131
  8. ZOLOFT [Concomitant]
     Indication: INSOMNIA
     Dosage: 100MG AT NIGHT
     Route: 048
     Dates: start: 20130122

REACTIONS (1)
  - Abnormal loss of weight [Recovered/Resolved]
